FAERS Safety Report 20680109 (Version 1)
Quarter: 2022Q2

REPORT INFORMATION
  Report Type: Spontaneous
  Country: US (occurrence: US)
  Receive Date: 20220406
  Receipt Date: 20220406
  Transmission Date: 20220720
  Serious: Yes (Hospitalization, Other)
  Sender: FDA-Public Use
  Company Number: US-MYLANLABS-2022M1024884

PATIENT
  Age: 53 Year
  Sex: Female
  Weight: 81.65 kg

DRUGS (2)
  1. SOTRADECOL [Suspect]
     Active Substance: SODIUM TETRADECYL SULFATE
     Indication: Product used for unknown indication
     Dosage: UNK
     Dates: start: 20220328
  2. SOTRADECOL [Suspect]
     Active Substance: SODIUM TETRADECYL SULFATE
     Indication: Product used for unknown indication
     Dosage: UNK
     Dates: start: 20220328

REACTIONS (2)
  - Hospitalisation [Recovered/Resolved]
  - Cerebrovascular accident [Unknown]

NARRATIVE: CASE EVENT DATE: 20220328
